FAERS Safety Report 4597676-5 (Version None)
Quarter: 2005Q1

REPORT INFORMATION
  Report Type: 
  Country: None (occurrence: None)
  Receive Date: 20050303
  Receipt Date: 20050131
  Transmission Date: 20050727
  Serious: Yes (Hospitalization)
  Sender: FDA-Public Use
  Company Number: GB-BRISTOL-MYERS SQUIBB COMPANY-12881140

PATIENT
  Age: 67 Year
  Sex: Female
  Weight: 88 kg

DRUGS (6)
  1. CYCLOPHOSPHAMIDE [Suspect]
     Indication: BREAST CANCER
     Route: 042
     Dates: start: 20041105, end: 20041105
  2. EPIRUBICIN [Suspect]
     Indication: BREAST CANCER
     Route: 042
     Dates: start: 20041105, end: 20041105
  3. METOCLOPRAMIDE [Concomitant]
     Route: 048
     Dates: start: 20040301
  4. BENDROFLUAZIDE [Concomitant]
     Route: 048
     Dates: start: 19980101
  5. THYROXINE [Concomitant]
     Route: 048
     Dates: start: 19980101
  6. ENALAPRIL [Concomitant]
     Route: 048

REACTIONS (5)
  - CHEST WALL PAIN [None]
  - DYSPNOEA [None]
  - HYPOTENSION [None]
  - NEUTROPENIC SEPSIS [None]
  - RENAL IMPAIRMENT [None]
